FAERS Safety Report 4891753-7 (Version None)
Quarter: 2006Q1

REPORT INFORMATION
  Report Type: 
  Country: None (occurrence: None)
  Receive Date: 20060125
  Receipt Date: 20060116
  Transmission Date: 20060701
  Serious: Yes (Other)
  Sender: FDA-Public Use
  Company Number: JP-SANOFI-SYNTHELABO-A01200600379

PATIENT
  Age: 80 Year
  Sex: Female

DRUGS (1)
  1. MYSLEE [Suspect]
     Indication: INSOMNIA
     Dosage: UNK
     Route: 048
     Dates: start: 20060112, end: 20060112

REACTIONS (1)
  - PARALYSIS [None]
